FAERS Safety Report 5802056-8 (Version None)
Quarter: 2008Q3

REPORT INFORMATION
  Report Type: 
  Country: None (occurrence: None)
  Receive Date: 20080707
  Receipt Date: 20080625
  Transmission Date: 20090109
  Serious: Yes (Life-Threatening, Hospitalization)
  Sender: FDA-Public Use
  Company Number: JP-PFIZER INC-2008049783

PATIENT
  Sex: Female
  Weight: 55 kg

DRUGS (6)
  1. SULPERAZON [Suspect]
     Indication: SEPSIS
     Dosage: DAILY DOSE:2GRAM
     Route: 042
     Dates: start: 20080524, end: 20080528
  2. CEFAZOLIN SODIUM [Suspect]
     Indication: INFECTION PROPHYLAXIS
     Route: 042
     Dates: start: 20080519, end: 20080522
  3. MEROPEN [Suspect]
     Indication: SEPSIS
     Route: 042
  4. MEROPEN [Suspect]
     Route: 042
     Dates: start: 20080530, end: 20080602
  5. ZANTAC [Concomitant]
     Route: 042
     Dates: start: 20080519, end: 20080610
  6. FASUDIL HYDROCHLORIDE [Concomitant]
     Route: 042
     Dates: start: 20080520, end: 20080531

REACTIONS (3)
  - DISSEMINATED INTRAVASCULAR COAGULATION [None]
  - DRUG INEFFECTIVE [None]
  - THROMBOCYTOPENIA [None]
